FAERS Safety Report 21558883 (Version 7)
Quarter: 2025Q1

REPORT INFORMATION
  Report Type: Spontaneous
  Country: US (occurrence: US)
  Receive Date: 20221107
  Receipt Date: 20250305
  Transmission Date: 20250409
  Serious: Yes (Other)
  Sender: MERCK SHARP & DOHME LLC
  Company Number: US-009507513-2210USA010585

PATIENT
  Sex: Female
  Weight: 90.249 kg

DRUGS (11)
  1. KEYTRUDA [Suspect]
     Active Substance: PEMBROLIZUMAB
     Indication: Malignant melanoma stage IV
     Dosage: DOSE DESCRIPTION : UNK UNK, Q3W
     Route: 042
     Dates: start: 20220823, end: 20220823
  2. KEYTRUDA [Suspect]
     Active Substance: PEMBROLIZUMAB
     Indication: Malignant melanoma stage IV
     Dosage: DOSE DESCRIPTION : UNK UNK, Q3W
     Route: 042
     Dates: start: 20221025, end: 20221025
  3. SODIUM CHLORIDE [Concomitant]
     Active Substance: SODIUM CHLORIDE
     Dosage: DOSE DESCRIPTION : 1 SPRAY, QD?DAILY DOSE : 1 DOSAGE FORM?CONCENTRATION: 0.65 PERCENT
     Route: 045
  4. FEXOFENADINE [Concomitant]
     Active Substance: FEXOFENADINE HYDROCHLORIDE
     Dosage: DOSE DESCRIPTION : HALF TABLET, QD?DAILY DOSE : 0.5 DOSAGE FORM?CONCENTRATION: 180 MILLIGRAM
     Route: 048
  5. PROBIOTICS NOS [Concomitant]
     Active Substance: PROBIOTICS NOS
     Dosage: DOSE DESCRIPTION : UNK, QD
     Route: 048
  6. PREDNISOLONE [Concomitant]
     Active Substance: PREDNISOLONE
     Route: 047
  7. LEVOTHYROXINE [Concomitant]
     Active Substance: LEVOTHYROXINE
     Dosage: DOSE DESCRIPTION : 1 CAPSULE, QD?DAILY DOSE : 1 DOSAGE FORM?CONCENTRATION: 88 MICROGRAM
     Route: 048
  8. LIOTHYRONINE [Concomitant]
     Active Substance: LIOTHYRONINE
     Dosage: DOSE DESCRIPTION : 5 MICROGRAM, QD?DAILY DOSE : 5 MICROGRAM?CONCENTRATION: 5 MICROGRAM
     Route: 048
  9. SIMPLY SALINE [Concomitant]
     Dosage: DOSE DESCRIPTION : AM, PM
  10. ASPIRIN [Concomitant]
     Active Substance: ASPIRIN
     Dosage: DOSE DESCRIPTION : 81 MILLIGRAM, QD?DAILY DOSE : 81 MILLIGRAM?CONCENTRATION: 81 MILLIGRAM
     Route: 048
  11. VITAMIN C [Concomitant]
     Active Substance: ASCORBIC ACID
     Dosage: DOSE DESCRIPTION : 1000 MILLIGRAM, QOD?DAILY DOSE : 500 MILLIGRAM?REGIMEN DOSE : 1000  MILLIGRAM
     Route: 048

REACTIONS (29)
  - Papilloedema [Not Recovered/Not Resolved]
  - Eye inflammation [Not Recovered/Not Resolved]
  - Photosensitivity reaction [Not Recovered/Not Resolved]
  - Dry age-related macular degeneration [Not Recovered/Not Resolved]
  - Arteriosclerosis coronary artery [Unknown]
  - Nephrolithiasis [Unknown]
  - Pulmonary hypertension [Unknown]
  - Retinal haemorrhage [Unknown]
  - Neovascular age-related macular degeneration [Unknown]
  - Mean cell haemoglobin concentration decreased [Unknown]
  - Eosinophil percentage increased [Unknown]
  - Hypoacusis [Not Recovered/Not Resolved]
  - Diverticulum intestinal [Unknown]
  - Spinal osteoarthritis [Unknown]
  - Vitreous floaters [Not Recovered/Not Resolved]
  - Photopsia [Not Recovered/Not Resolved]
  - Lymphadenopathy [Recovering/Resolving]
  - Atrioventricular block [Unknown]
  - Bundle branch block [Unknown]
  - Obstructive sleep apnoea syndrome [Unknown]
  - Supraventricular tachycardia [Unknown]
  - Chapped lips [Unknown]
  - Oedema genital [Unknown]
  - Skin fissures [Unknown]
  - Lip swelling [Unknown]
  - Dry eye [Unknown]
  - Rash pruritic [Unknown]
  - Fatigue [Unknown]
  - Rash maculo-papular [Unknown]

NARRATIVE: CASE EVENT DATE: 20220101
